FAERS Safety Report 7000735-0 (Version None)
Quarter: 2010Q3

REPORT INFORMATION
  Report Type: 
  Country: None (occurrence: None)
  Receive Date: 20100920
  Receipt Date: 20070509
  Transmission Date: 20110219
  Serious: Yes (Hospitalization, Other)
  Sender: FDA-Public Use
  Company Number: US-ASTRAZENECA-2006UW11444

PATIENT
  Age: 549 Month
  Sex: Female
  Weight: 108.4 kg

DRUGS (13)
  1. SEROQUEL [Suspect]
     Indication: MENTAL DISORDER
     Dosage: 25MG TO 200MG
     Route: 048
     Dates: start: 20040521
  2. SEROQUEL [Suspect]
     Route: 048
  3. ZYPREXA [Concomitant]
     Dosage: 5MG TO 30MG
     Route: 048
     Dates: start: 20000118
  4. ZYPREXA [Concomitant]
  5. PROZAC [Concomitant]
     Dosage: 20MG TO 60 MG
     Route: 048
     Dates: start: 19950317
  6. KLONOPIN [Concomitant]
     Dosage: 1MG TO 5MG
     Route: 048
     Dates: start: 19950317
  7. NEURONTIN [Concomitant]
     Route: 048
     Dates: start: 20000328
  8. DARVOCET [Concomitant]
     Dosage: 100MG AS NEEDED
     Route: 048
     Dates: start: 19970910
  9. GLYBURIDE [Concomitant]
     Dosage: 2.5MG TO 10MG
     Dates: start: 20040514
  10. ZOCOR [Concomitant]
     Route: 048
     Dates: start: 20021227
  11. FIORICET [Concomitant]
     Route: 048
     Dates: start: 19970910
  12. GLIPIZIDE [Concomitant]
     Dosage: 5MG TO 10MG
     Dates: start: 20050601
  13. AVANDIA [Concomitant]
     Dosage: 4MG TO 8MG
     Dates: start: 20060504

REACTIONS (6)
  - DIABETES MELLITUS [None]
  - DIABETES MELLITUS INADEQUATE CONTROL [None]
  - DIABETIC KETOACIDOSIS [None]
  - HYPERGLYCAEMIA [None]
  - HYPERGLYCAEMIC HYPEROSMOLAR NONKETOTIC SYNDROME [None]
  - TYPE 2 DIABETES MELLITUS [None]
